FAERS Safety Report 8782154 (Version 1)
Quarter: 2012Q4

REPORT INFORMATION
  Report Type: 
  Country: NL (occurrence: NL)
  Receive Date: 20120913
  Receipt Date: 20120913
  Transmission Date: 20130627
  Serious: Yes (Hospitalization)
  Sender: FDA-Public Use
  Company Number: NL-RANBAXY-2012R1-59862

PATIENT
  Age: 24 Year
  Sex: Male

DRUGS (1)
  1. PARACETAMOL [Suspect]
     Indication: PRODUCT USED FOR UNKNOWN INDICATION
     Dosage: 40 Tablets of Paracetamol 500 mg
     Route: 048

REACTIONS (2)
  - Liver injury [Recovered/Resolved]
  - Intentional overdose [Recovered/Resolved]
